FAERS Safety Report 9855119 (Version 4)
Quarter: 2014Q1

REPORT INFORMATION
  Report Type: Spontaneous
  Country: GB (occurrence: GB)
  Receive Date: 20140130
  Receipt Date: 20140305
  Transmission Date: 20141002
  Serious: Yes (Other)
  Sender: FDA-Public Use
  Company Number: GB-MERCK-1401GBR013911

PATIENT
  Sex: Female

DRUGS (18)
  1. LORATADINE [Suspect]
     Indication: ANGIOEDEMA
     Route: 048
  2. LORATADINE [Suspect]
     Indication: URTICARIA CHRONIC
  3. METHOTREXATE [Suspect]
     Indication: ANGIOEDEMA
     Route: 048
  4. METHOTREXATE [Suspect]
     Indication: URTICARIA CHRONIC
  5. PREDNISOLONE [Suspect]
     Indication: ANGIOEDEMA
     Dosage: 25-40MG PER WEEK FOR 2-3 WEEKS
  6. PREDNISOLONE [Suspect]
     Indication: URTICARIA CHRONIC
  7. CETIRIZINE HYDROCHLORIDE [Suspect]
     Indication: ANGIOEDEMA
  8. CETIRIZINE HYDROCHLORIDE [Suspect]
     Indication: URTICARIA CHRONIC
  9. CYCLOSPORINE [Suspect]
     Indication: ANGIOEDEMA
     Dosage: 2.5 MG/KG, UNK
  10. CYCLOSPORINE [Suspect]
     Indication: URTICARIA CHRONIC
  11. DAPSONE [Suspect]
     Indication: ANGIOEDEMA
     Dosage: 50 MG; 1/1 WEEKS
  12. DAPSONE [Suspect]
     Indication: URTICARIA CHRONIC
  13. FEXOFENADINE HYDROCHLORIDE [Suspect]
     Indication: ANGIOEDEMA
  14. FEXOFENADINE HYDROCHLORIDE [Suspect]
     Indication: URTICARIA CHRONIC
  15. HYDROXYCHLOROQUINE SULFATE [Suspect]
     Indication: ANGIOEDEMA
     Dosage: 200 MG, UNK
  16. HYDROXYCHLOROQUINE SULFATE [Suspect]
     Indication: URTICARIA CHRONIC
     Dosage: 400 MG, UNK
  17. HYDROXYZINE [Suspect]
     Indication: ANGIOEDEMA
  18. HYDROXYZINE [Suspect]
     Indication: URTICARIA CHRONIC

REACTIONS (6)
  - Angioedema [Not Recovered/Not Resolved]
  - Urticaria [Not Recovered/Not Resolved]
  - Asthma [Not Recovered/Not Resolved]
  - Blood pressure increased [Unknown]
  - Drug effect incomplete [Not Recovered/Not Resolved]
  - Drug ineffective [Unknown]
